FAERS Safety Report 8452342-0 (Version None)
Quarter: 2012Q2

REPORT INFORMATION
  Report Type: 
  Country: None (occurrence: None)
  Receive Date: 20120620
  Receipt Date: 20120607
  Transmission Date: 20120825
  Serious: No
  Sender: FDA-Public Use
  Company Number: US-ASTRAZENECA-2012SE38420

PATIENT
  Age: 76 Year
  Sex: Male
  Weight: 82.1 kg

DRUGS (5)
  1. BRILINTA [Suspect]
     Route: 048
     Dates: start: 20120101
  2. ASPIRIN [Concomitant]
  3. INSULIN [Concomitant]
     Indication: DIABETES MELLITUS
  4. METFORMIN HCL [Concomitant]
     Indication: DIABETES MELLITUS
  5. GLIPIZIDE [Concomitant]
     Indication: DIABETES MELLITUS

REACTIONS (3)
  - WEIGHT DECREASED [None]
  - RASH PRURITIC [None]
  - COUGH [None]
